FAERS Safety Report 11807870 (Version 1)
Quarter: 2015Q4

REPORT INFORMATION
  Report Type: Spontaneous
  Country: MX (occurrence: MX)
  Receive Date: 20151207
  Receipt Date: 20151207
  Transmission Date: 20160305
  Serious: Yes (Other)
  Sender: FDA-Public Use
  Company Number: MX-BAYER-2015-478425

PATIENT
  Age: 23 Year
  Sex: Female

DRUGS (2)
  1. ACETYLSALICYLIC ACID({=100 MG) [Suspect]
     Active Substance: ASPIRIN
     Indication: ANTICOAGULANT THERAPY
     Dosage: 100MG DAILY
  2. ENOXAPARIN [Concomitant]
     Active Substance: ENOXAPARIN
     Indication: ANTICOAGULANT THERAPY
     Dosage: 20 MGS OF SUBCUTANEOUS ENOXAPARIN
     Route: 058

REACTIONS (3)
  - Maternal exposure during pregnancy [None]
  - Breech presentation [None]
  - Off label use [None]
